FAERS Safety Report 13272958 (Version 3)
Quarter: 2017Q2

REPORT INFORMATION
  Report Type: Spontaneous
  Country: JP (occurrence: JP)
  Receive Date: 20170227
  Receipt Date: 20170522
  Transmission Date: 20170830
  Serious: Yes (Hospitalization, Other)
  Sender: FDA-Public Use
  Company Number: JP-OTSUKA-2016_021310AA

PATIENT
  Age: 36 Year
  Sex: Male

DRUGS (6)
  1. SAMSCA [Suspect]
     Active Substance: TOLVAPTAN
     Dosage: 15 MG, DAILY (IN THE EVENING)
     Route: 048
     Dates: start: 20160216, end: 20160216
  2. SAMSCA [Suspect]
     Active Substance: TOLVAPTAN
     Dosage: 30 MG, DAILY
     Route: 048
     Dates: start: 20160817, end: 20160830
  3. SAMSCA [Suspect]
     Active Substance: TOLVAPTAN
     Dosage: 45 MG, DAILY
     Route: 048
     Dates: start: 20160810, end: 20160816
  4. SAMSCA [Suspect]
     Active Substance: TOLVAPTAN
     Dosage: 30 MG, DAILY
     Route: 048
     Dates: start: 20160217, end: 20160322
  5. SAMSCA [Suspect]
     Active Substance: TOLVAPTAN
     Indication: CONGENITAL CYSTIC KIDNEY DISEASE
     Dosage: 60 MG, DAILY
     Route: 048
     Dates: start: 20160525, end: 20160809
  6. SAMSCA [Suspect]
     Active Substance: TOLVAPTAN
     Dosage: 45 MG, DAILY
     Route: 048
     Dates: start: 20160323, end: 20160524

REACTIONS (1)
  - Drug-induced liver injury [Recovered/Resolved]

NARRATIVE: CASE EVENT DATE: 20160809
